FAERS Safety Report 4961891-9 (Version None)
Quarter: 2006Q1

REPORT INFORMATION
  Report Type: 
  Country: None (occurrence: None)
  Receive Date: 20060329
  Receipt Date: 20060316
  Transmission Date: 20060701
  Serious: Yes (Hospitalization)
  Sender: FDA-Public Use
  Company Number: T200600082

PATIENT
  Sex: Female

DRUGS (2)
  1. OPTIRAY 160 [Suspect]
     Indication: COMPUTERISED TOMOGRAM
     Dosage: 125 ML, SINGLE, INTRAVENOUS
     Route: 042
     Dates: start: 20060315, end: 20060315
  2. PREDNISONE TAB [Concomitant]

REACTIONS (5)
  - DYSPNOEA [None]
  - OCULAR HYPERAEMIA [None]
  - PERIORBITAL OEDEMA [None]
  - RESPIRATORY DISTRESS [None]
  - WHEEZING [None]
